FAERS Safety Report 8984774 (Version 1)
Quarter: 2012Q4

REPORT INFORMATION
  Report Type: Spontaneous
  Country: US (occurrence: None)
  Receive Date: 20121214
  Receipt Date: 20121214
  Transmission Date: 20130627
  Serious: Yes (Death, Other)
  Sender: FDA-Public Use
  Company Number: 2012P1066574

PATIENT
  Age: 65 Year
  Sex: Male

DRUGS (6)
  1. INFUMORPH [Suspect]
     Indication: PAIN
  2. INFUMORPH [Suspect]
     Indication: FAILED BACK SURGERY SYNDROME
  3. INFUMORPH [Suspect]
     Indication: PAIN
  4. INFUMORPH [Suspect]
     Indication: FAILED BACK SURGERY SYNDROME
  5. INFUMORPH [Suspect]
     Indication: PAIN
  6. INFUMORPH [Suspect]
     Indication: FAILED BACK SURGERY SYNDROME

REACTIONS (1)
  - Pneumonia [None]
